FAERS Safety Report 7419786-7 (Version None)
Quarter: 2011Q2

REPORT INFORMATION
  Report Type: 
  Country: None (occurrence: None)
  Receive Date: 20110413
  Receipt Date: 20110413
  Transmission Date: 20111010
  Serious: Yes (Other)
  Sender: FDA-Public Use
  Company Number: None

PATIENT
  Age: 33 Year
  Sex: Female
  Weight: 102.0593 kg

DRUGS (2)
  1. SAVELLA [Suspect]
     Indication: FIBROMYALGIA
     Dosage: 50 MG TBLET BID PO
     Route: 048
     Dates: start: 20110411, end: 20110411
  2. SAVELLA [Suspect]
     Indication: FIBROMYALGIA
     Dosage: 50 MG TBLET BID PO
     Route: 048
     Dates: start: 20110223, end: 20110223

REACTIONS (18)
  - HYPERTENSION [None]
  - CHEST PAIN [None]
  - DECREASED APPETITE [None]
  - DYSURIA [None]
  - HYPERHIDROSIS [None]
  - BLOOD MAGNESIUM [None]
  - OEDEMA PERIPHERAL [None]
  - ABDOMINAL PAIN [None]
  - AGITATION [None]
  - HOT FLUSH [None]
  - INSOMNIA [None]
  - VISION BLURRED [None]
  - PALPITATIONS [None]
  - FLUSHING [None]
  - CONSTIPATION [None]
  - TREMOR [None]
  - HEADACHE [None]
  - WEIGHT DECREASED [None]
